FAERS Safety Report 4523474-4 (Version None)
Quarter: 2004Q4

REPORT INFORMATION
  Report Type: 
  Country: None (occurrence: None)
  Receive Date: 20041210
  Receipt Date: 20041206
  Transmission Date: 20050328
  Serious: Yes (Hospitalization)
  Sender: FDA-Public Use
  Company Number: PHBS2004BR16373

PATIENT
  Age: 23 Year
  Sex: Female

DRUGS (1)
  1. PARLODEL [Suspect]
     Indication: SUPPRESSED LACTATION
     Dosage: 2.5 MG, ONCE/SINGLE
     Route: 048

REACTIONS (2)
  - DYSPNOEA [None]
  - SYNCOPE [None]
